FAERS Safety Report 8443652-1 (Version None)
Quarter: 2012Q2

REPORT INFORMATION
  Report Type: 
  Country: None (occurrence: None)
  Receive Date: 20120607
  Receipt Date: 20120529
  Transmission Date: 20120825
  Serious: Yes (Other)
  Sender: FDA-Public Use
  Company Number: A0980260A

PATIENT
  Age: 34 Year
  Sex: Female

DRUGS (1)
  1. CIMETIDINE [Suspect]
     Indication: PRODUCT USED FOR UNKNOWN INDICATION
     Dosage: 200 MG

REACTIONS (4)
  - SKIN TEST POSITIVE [None]
  - TYPE I HYPERSENSITIVITY [None]
  - ANGIOEDEMA [None]
  - URTICARIA [None]
